FAERS Safety Report 21670527 (Version 1)
Quarter: 2022Q4

REPORT INFORMATION
  Report Type: Spontaneous
  Country: US (occurrence: US)
  Receive Date: 20221201
  Receipt Date: 20221201
  Transmission Date: 20230113
  Serious: No
  Sender: FDA-Public Use
  Company Number: US-STERISCIENCE B.V.-2021M1084396

PATIENT
  Age: 34 Year
  Sex: Female

DRUGS (5)
  1. MIDODRINE [Suspect]
     Active Substance: MIDODRINE
     Indication: Orthostatic hypotension
     Dosage: UNK
     Route: 065
  2. BUPIVACAINE HYDROCHLORIDE [Suspect]
     Active Substance: BUPIVACAINE HYDROCHLORIDE
     Indication: Spinal anaesthesia
     Dosage: 12 MILLIGRAM
  3. FENTANYL [Suspect]
     Active Substance: FENTANYL
     Indication: Spinal anaesthesia
     Dosage: 10 MICROGRAM
  4. MORPHINE [Suspect]
     Active Substance: MORPHINE
     Indication: Spinal anaesthesia
     Dosage: 100 MICROGRAM
  5. PHENYLEPHRINE [Suspect]
     Active Substance: PHENYLEPHRINE HYDROCHLORIDE
     Indication: Haemodynamic instability
     Dosage: UNK, INFUSION

REACTIONS (2)
  - Maternal exposure during pregnancy [Unknown]
  - Maternal exposure during delivery [Unknown]
